APPROVED DRUG PRODUCT: CLOPIDOGREL BISULFATE
Active Ingredient: CLOPIDOGREL BISULFATE
Strength: EQ 300MG BASE
Dosage Form/Route: TABLET;ORAL
Application: A091216 | Product #001
Applicant: ANI PHARMACEUTICALS INC
Approved: May 17, 2012 | RLD: No | RS: No | Type: DISCN